FAERS Safety Report 9437598 (Version 3)
Quarter: 2013Q3

REPORT INFORMATION
  Report Type: Spontaneous
  Country: FR (occurrence: DZ)
  Receive Date: 20130802
  Receipt Date: 20130819
  Transmission Date: 20140515
  Serious: Yes (Death, Hospitalization, Other)
  Sender: FDA-Public Use
  Company Number: DZ-MYLANLABS-2013S1017100

PATIENT
  Age: 2 Year
  Sex: Female
  Weight: 6.2 kg

DRUGS (3)
  1. CYSTAGON CAPSULES [Suspect]
     Indication: CYSTINOSIS
     Dates: start: 20110911, end: 20130705
  2. INDOMETHACIN [Concomitant]
     Indication: FANCONI SYNDROME
     Dates: start: 20110911, end: 20130705
  3. INDOMETHACIN [Concomitant]
     Indication: FANCONI SYNDROME
     Dosage: DOSE INCREASED DURING HOSPITALIZATION
     Dates: start: 201304, end: 201306

REACTIONS (4)
  - Haematemesis [Fatal]
  - Dehydration [Fatal]
  - Tachypnoea [Fatal]
  - Diarrhoea [Fatal]
